FAERS Safety Report 7720056-8 (Version None)
Quarter: 2011Q3

REPORT INFORMATION
  Report Type: 
  Country: None (occurrence: None)
  Receive Date: 20110824
  Receipt Date: 20110809
  Transmission Date: 20111222
  Serious: Yes (Disabling)
  Sender: FDA-Public Use
  Company Number: 2011MA011593

PATIENT
  Age: 43 Year
  Sex: Male

DRUGS (1)
  1. PHENOBARBITAL TAB [Suspect]
     Indication: CONVULSION PROPHYLAXIS
     Dosage: 100 MG;QD

REACTIONS (2)
  - SKIN GRAFT [None]
  - DUPUYTREN'S CONTRACTURE [None]
